FAERS Safety Report 13862541 (Version 1)
Quarter: 2017Q3

REPORT INFORMATION
  Report Type: Spontaneous
  Country: US (occurrence: US)
  Receive Date: 20170814
  Receipt Date: 20170814
  Transmission Date: 20171127
  Serious: Yes (Hospitalization)
  Sender: FDA-Public Use
  Company Number: US-KADMON PHARMACEUTICALS, LLC-KAD201708-000909

PATIENT
  Age: 53 Year
  Sex: Female

DRUGS (12)
  1. PREMPRO [Concomitant]
     Active Substance: ESTROGENS, CONJUGATED\MEDROXYPROGESTERONE ACETATE
  2. ONDANSETRON [Concomitant]
     Active Substance: ONDANSETRON
  3. BOCEPREVIR [Suspect]
     Active Substance: BOCEPREVIR
     Indication: HEPATITIS C
     Dates: start: 20111004
  4. ENALAPRIL [Concomitant]
     Active Substance: ENALAPRIL
  5. RIBASPHERE [Suspect]
     Active Substance: RIBAVIRIN
     Indication: HEPATITIS C
     Route: 048
     Dates: start: 20111004
  6. DEXILANT [Concomitant]
     Active Substance: DEXLANSOPRAZOLE
  7. METFORMIN [Concomitant]
     Active Substance: METFORMIN HYDROCHLORIDE
  8. PAROXETINE. [Concomitant]
     Active Substance: PAROXETINE
  9. BACLOFEN. [Concomitant]
     Active Substance: BACLOFEN
  10. MELOXICAM. [Concomitant]
     Active Substance: MELOXICAM
  11. PEG-INTERFERON ALPHA-2A [Suspect]
     Active Substance: PEGINTERFERON ALFA-2A
     Indication: HEPATITIS C
     Dosage: PRE-FILLED SYRINGE
     Dates: start: 20111004
  12. TELAPREVIR [Suspect]
     Active Substance: TELAPREVIR
     Indication: HEPATITIS C
     Dates: start: 20111004

REACTIONS (6)
  - Vomiting [Unknown]
  - Decreased appetite [Unknown]
  - Rash [Unknown]
  - Pruritus [Unknown]
  - Weight decreased [Unknown]
  - Dehydration [Unknown]
